FAERS Safety Report 13202011 (Version 1)
Quarter: 2017Q1

REPORT INFORMATION
  Report Type: Spontaneous
  Country: MX (occurrence: MX)
  Receive Date: 20170209
  Receipt Date: 20170209
  Transmission Date: 20170509
  Serious: Yes (Hospitalization, Other)
  Sender: FDA-Public Use
  Company Number: MX-SUN PHARMACEUTICAL INDUSTRIES LTD-2017R1-132965

PATIENT
  Weight: .9 kg

DRUGS (1)
  1. DIGOXIN. [Suspect]
     Active Substance: DIGOXIN
     Indication: HAEMODYNAMIC INSTABILITY
     Dosage: 0.25 MG, DAILY
     Route: 064

REACTIONS (5)
  - Foetal exposure during pregnancy [Unknown]
  - Low birth weight baby [Unknown]
  - Mechanical ventilation [Unknown]
  - Premature baby [Unknown]
  - Foetal growth restriction [Unknown]
